FAERS Safety Report 9460295 (Version 2)
Quarter: 2014Q3

REPORT INFORMATION
  Report Type: Spontaneous
  Country: US (occurrence: US)
  Receive Date: 20130815
  Receipt Date: 20140711
  Transmission Date: 20150326
  Serious: No
  Sender: FDA-Public Use
  Company Number: US-009507513-1308USA001915

PATIENT
  Age: 55 Year
  Sex: Male

DRUGS (4)
  1. REBETOL [Suspect]
     Active Substance: RIBAVIRIN
     Indication: CHRONIC HEPATITIS C
     Dosage: UNK
     Route: 048
  2. TELAPREVIR [Suspect]
     Active Substance: TELAPREVIR
     Indication: CHRONIC HEPATITIS C
     Dosage: UNK
  3. PEGINTRON [Suspect]
     Active Substance: PEGINTERFERON ALFA-2B
     Indication: CHRONIC HEPATITIS C
     Dosage: UNK
  4. VICTRELIS [Suspect]
     Active Substance: BOCEPREVIR
     Indication: CHRONIC HEPATITIS C

REACTIONS (2)
  - Pathogen resistance [Unknown]
  - Drug ineffective [Unknown]
